FAERS Safety Report 6697721-7 (Version None)
Quarter: 2010Q2

REPORT INFORMATION
  Report Type: 
  Country: None (occurrence: None)
  Receive Date: 20100423
  Receipt Date: 20100412
  Transmission Date: 20101027
  Serious: Yes (Hospitalization)
  Sender: FDA-Public Use
  Company Number: 010368

PATIENT
  Sex: Female
  Weight: 74.9 kg

DRUGS (15)
  1. CERTOLIZUMAB PEGOL [Suspect]
     Indication: RHEUMATOID ARTHRITIS
     Dosage: (400 MG, 400 MG ONCE SUBCUTANEOUS)
     Route: 058
     Dates: start: 20100107, end: 20100107
  2. METHOTREXATE [Concomitant]
  3. PREDNISONE [Concomitant]
  4. IBUPROFEN [Concomitant]
  5. DARVOCET [Concomitant]
  6. METOPROLOL [Concomitant]
  7. SYNTHROID [Concomitant]
  8. LEXAPRO [Concomitant]
  9. METFORMIN [Concomitant]
  10. GLIPIZIDE [Concomitant]
  11. GABAPENTIN [Concomitant]
  12. PLAVIX [Concomitant]
  13. TRICOR [Concomitant]
  14. CRESTOR [Concomitant]
  15. FISH OIL [Concomitant]

REACTIONS (2)
  - ANAEMIA [None]
  - GASTROENTERITIS [None]
